FAERS Safety Report 16042952 (Version 3)
Quarter: 2019Q1

REPORT INFORMATION
  Report Type: Report from Study
  Country: US (occurrence: US)
  Receive Date: 20190306
  Receipt Date: 20190325
  Transmission Date: 20190418
  Serious: Yes (Life-Threatening, Other)
  Sender: FDA-Public Use
  Company Number: US-OTSUKA-2018_031930

PATIENT
  Sex: Female

DRUGS (2)
  1. TOLVAPTAN [Suspect]
     Active Substance: TOLVAPTAN
     Dosage: 15 MG, QD (IN EVENING 8 HOURS LATER)
     Route: 048
     Dates: start: 20180905
  2. TOLVAPTAN [Suspect]
     Active Substance: TOLVAPTAN
     Indication: CONGENITAL CYSTIC KIDNEY DISEASE
     Dosage: 45 MG, QD (IN MORNING UPON WAKING)
     Route: 048
     Dates: start: 20180905

REACTIONS (3)
  - Polyuria [Not Recovered/Not Resolved]
  - Liver injury [Unknown]
  - Thirst [Not Recovered/Not Resolved]
